FAERS Safety Report 6260187 (Version 6)
Quarter: 2013Q2

REPORT INFORMATION
  Report Type: Spontaneous
  Country: GB (occurrence: GB)
  Receive Date: 20070313
  Receipt Date: 20130611
  Transmission Date: 20140414
  Serious: Yes (Hospitalization, Other)
  Sender: FDA-Public Use
  Company Number: GB-JNJFOC-20070302239

PATIENT
  Age: 8 Year
  Sex: Male

DRUGS (5)
  1. IBUPROFEN [Suspect]
     Route: 048
  2. IBUPROFEN [Suspect]
     Indication: VIRAEMIA
     Route: 048
  3. PARACETAMOL [Suspect]
     Route: 065
  4. PARACETAMOL [Suspect]
     Indication: VIRAEMIA
     Route: 065
  5. CEFTRIAXONE [Suspect]
     Indication: PRODUCT USED FOR UNKNOWN INDICATION
     Route: 065

REACTIONS (12)
  - Renal papillary necrosis [Recovered/Resolved]
  - Anuria [Recovered/Resolved]
  - Ureteric obstruction [Recovered/Resolved]
  - Abdominal pain [Recovered/Resolved]
  - Body temperature increased [Recovered/Resolved]
  - Blood creatinine increased [Recovered/Resolved]
  - Rash macular [Recovered/Resolved]
  - Musculoskeletal stiffness [Recovered/Resolved]
  - Peritonitis [Recovered/Resolved]
  - Malaise [Recovered/Resolved]
  - Urine output decreased [Recovered/Resolved]
  - Vomiting [Recovered/Resolved]
